FAERS Safety Report 4484765-9 (Version None)
Quarter: 2004Q3

REPORT INFORMATION
  Report Type: 
  Country: None (occurrence: None)
  Receive Date: 20040921
  Receipt Date: 20040210
  Transmission Date: 20050211
  Serious: Yes (Other)
  Sender: FDA-Public Use
  Company Number: 163-20785-03110443(0)

PATIENT
  Age: 9 Year
  Sex: Male

DRUGS (3)
  1. THALOMID [Suspect]
     Indication: HAEMANGIOMA CONGENITAL
     Dosage: 250 MG, DAILY, ORAL
     Route: 048
     Dates: start: 20030327, end: 20030701
  2. IRON (IRON) [Concomitant]
  3. AMICAR [Concomitant]

REACTIONS (1)
  - PORTAL VEIN THROMBOSIS [None]
